FAERS Safety Report 8688722 (Version 3)
Quarter: 2012Q4

REPORT INFORMATION
  Report Type: 
  Country: US (occurrence: US)
  Receive Date: 20120727
  Receipt Date: 20121004
  Transmission Date: 20130627
  Serious: Yes (Hospitalization, Other)
  Sender: FDA-Public Use
  Company Number: US-CELGENEUS-163-21880-12072144

PATIENT
  Age: 66 None
  Sex: Male

DRUGS (4)
  1. REVLIMID [Suspect]
     Indication: MULTIPLE MYELOMA
     Dosage: 15 Milligram
     Route: 048
     Dates: start: 20110923
  2. REVLIMID [Suspect]
     Dosage: 10 Milligram
     Route: 048
     Dates: start: 201202
  3. REVLIMID [Suspect]
     Dosage: 25 Milligram
     Route: 048
     Dates: start: 20120601
  4. REVLIMID [Suspect]
     Dosage: 20 Milligram
     Route: 048
     Dates: start: 20120718

REACTIONS (5)
  - Prostate cancer [Unknown]
  - Appendicitis [Unknown]
  - Ileus paralytic [Unknown]
  - Dehydration [Unknown]
  - Decreased appetite [Unknown]
